FAERS Safety Report 12515119 (Version 3)
Quarter: 2018Q1

REPORT INFORMATION
  Report Type: Spontaneous
  Country: US (occurrence: US)
  Receive Date: 20160630
  Receipt Date: 20180205
  Transmission Date: 20180508
  Serious: Yes (Death, Life-Threatening, Hospitalization)
  Sender: FDA-Public Use
  Company Number: US-JNJFOC-20160520696

PATIENT
  Age: 83 Year
  Sex: Female

DRUGS (1)
  1. XARELTO [Suspect]
     Active Substance: RIVAROXABAN
     Indication: PULMONARY EMBOLISM
     Route: 048
     Dates: start: 20160403, end: 20160418

REACTIONS (7)
  - Death [Fatal]
  - Gastrointestinal haemorrhage [Unknown]
  - Respiratory failure [Unknown]
  - Myocardial infarction [Unknown]
  - Renal injury [Unknown]
  - Acute respiratory failure [Unknown]
  - Shock haemorrhagic [Unknown]

NARRATIVE: CASE EVENT DATE: 20160418
